FAERS Safety Report 11814069 (Version 1)
Quarter: 2015Q4

REPORT INFORMATION
  Report Type: Spontaneous
  Country: TR (occurrence: TR)
  Receive Date: 20151209
  Receipt Date: 20151209
  Transmission Date: 20160305
  Serious: Yes (Other)
  Sender: FDA-Public Use
  Company Number: PHHY2015TR157757

PATIENT
  Age: 85 Year
  Sex: Male
  Weight: 75 kg

DRUGS (3)
  1. MONODUR [Concomitant]
     Indication: CARDIAC DISORDER
     Dosage: 60 MG, ONCE/SINGLE
     Route: 048
  2. ADALAT CRONO [Concomitant]
     Active Substance: NIFEDIPINE
     Indication: CARDIAC DISORDER
     Dosage: 30 MG, BID
     Route: 048
  3. ENALAPRIL MALEATE SANDOZ [Suspect]
     Active Substance: ENALAPRIL MALEATE
     Indication: HYPERTENSION
     Dosage: 10 MG, BID
     Route: 048

REACTIONS (3)
  - Pain in extremity [Not Recovered/Not Resolved]
  - Hypertension [Not Recovered/Not Resolved]
  - Angina pectoris [Not Recovered/Not Resolved]

NARRATIVE: CASE EVENT DATE: 20151129
